FAERS Safety Report 9509463 (Version 2)
Quarter: 2013Q3

REPORT INFORMATION
  Report Type: Spontaneous
  Country: US (occurrence: US)
  Receive Date: 20130909
  Receipt Date: 20130909
  Transmission Date: 20140515
  Serious: No
  Sender: FDA-Public Use
  Company Number: US-BRISTOL-MYERS SQUIBB COMPANY-18961615

PATIENT
  Age: 61 Year
  Sex: Female
  Weight: 97.5 kg

DRUGS (5)
  1. ABILIFY [Suspect]
     Indication: MAJOR DEPRESSION
     Dosage: 2MG AT NIGHT
  2. OXYBUTYNIN [Concomitant]
     Indication: URINARY INCONTINENCE
     Dosage: 5 MG MORNING AND EVENING DATE UNKNOWN
  3. SIMVASTATIN [Concomitant]
     Dosage: BREAKS 40MG PILL IN HALF
  4. WELLBUTRIN SR [Concomitant]
     Dosage: STRTD 10YRS AGO.200MG TWICE A DAY.?NOT WORKNG 6-8 YRS.?150MG IN MORNING AND 150 MG IN EVENING.
  5. CITALOPRAM [Concomitant]

REACTIONS (2)
  - Drug ineffective [Unknown]
  - Somnolence [Unknown]
